FAERS Safety Report 6252191-8 (Version None)
Quarter: 2009Q2

REPORT INFORMATION
  Report Type: 
  Country: None (occurrence: None)
  Receive Date: 20090630
  Receipt Date: 20090622
  Transmission Date: 20091009
  Serious: Yes (Death)
  Sender: FDA-Public Use
  Company Number: US-GILEAD-2009-0022711

PATIENT
  Sex: Male
  Weight: 63.56 kg

DRUGS (10)
  1. LETAIRIS [Suspect]
     Indication: PULMONARY ARTERIAL HYPERTENSION
     Route: 048
     Dates: start: 20090305, end: 20090620
  2. CELLCEPT [Concomitant]
  3. HYDROCHLOROTHIAZIDE [Concomitant]
  4. VERAPAMIL [Concomitant]
  5. GABAPENTIN [Concomitant]
  6. ALBUTEROL [Concomitant]
  7. IPRATROPIUM BROMIDE [Concomitant]
  8. ACETLCYSTEINE [Concomitant]
  9. METFORMIN HCL [Concomitant]
  10. ZOLPIDEM TARTRATE [Concomitant]

REACTIONS (1)
  - DEATH [None]
